FAERS Safety Report 6135095-0 (Version None)
Quarter: 2009Q1

REPORT INFORMATION
  Report Type: 
  Country: None (occurrence: None)
  Receive Date: 20090325
  Receipt Date: 20090308
  Transmission Date: 20090719
  Serious: Yes (Other)
  Sender: FDA-Public Use
  Company Number: 2007S1008382

PATIENT
  Age: 52 Year
  Sex: Male
  Weight: 83.0083 kg

DRUGS (10)
  1. PHOSPHOSODA FLAVOR NOT SPECIFIED [Suspect]
     Indication: COLONOSCOPY
     Dosage: PO
     Route: 048
     Dates: start: 20051113, end: 20051114
  2. COZAAR [Concomitant]
  3. ZESTRIL [Concomitant]
  4. SYNTHROID [Concomitant]
  5. HUMALOG [Concomitant]
  6. ASPIRIN [Concomitant]
  7. ZETIA [Concomitant]
  8. AVAPRO [Concomitant]
  9. CADUET [Concomitant]
  10. LANTUS [Concomitant]

REACTIONS (8)
  - CHILLS [None]
  - DIABETIC NEPHROPATHY [None]
  - HYPERPARATHYROIDISM [None]
  - HYPERTENSION [None]
  - INSOMNIA [None]
  - NEPHROPATHY [None]
  - RENAL FAILURE [None]
  - RENAL FAILURE CHRONIC [None]
